FAERS Safety Report 13095998 (Version 2)
Quarter: 2018Q4

REPORT INFORMATION
  Report Type: Spontaneous
  Country: US (occurrence: US)
  Receive Date: 20170109
  Receipt Date: 20181106
  Transmission Date: 20190204
  Serious: Yes (Hospitalization)
  Sender: FDA-Public Use
  Company Number: US-ACCORD-047037

PATIENT
  Age: 13 Year
  Sex: Female
  Weight: 57 kg

DRUGS (11)
  1. PARACETAMOL [Concomitant]
     Active Substance: ACETAMINOPHEN
  2. ONDANSETRON [Concomitant]
     Active Substance: ONDANSETRON
     Dosage: PF
  3. ACETYLSALICYLIC ACID [Suspect]
     Active Substance: ASPIRIN
     Indication: ANTIPLATELET THERAPY
     Dosage: STANDARD ADULT REGIMEN
  4. LEVETIRACETAM. [Concomitant]
     Active Substance: LEVETIRACETAM
     Route: 048
  5. AMLODIPINE [Concomitant]
     Active Substance: AMLODIPINE BESYLATE
     Route: 048
  6. CLOPIDOGREL [Suspect]
     Active Substance: CLOPIDOGREL BISULFATE
     Indication: DEVICE EMBOLISATION
     Dosage: STANDARD ADULT REGIMEN??OVER THE NEXT 2 WEEKS, CAREFULLY TITRATED TO REACH A TARGET OF 40-60%
  7. DILAUDID [Concomitant]
     Active Substance: HYDROMORPHONE HYDROCHLORIDE
  8. HYDRALAZINE [Concomitant]
     Active Substance: HYDRALAZINE HYDROCHLORIDE
  9. DOCUSATE SODIUM/SENNA ALEXANDRINA [Concomitant]
     Route: 048
  10. SODIUM CHLORIDE. [Concomitant]
     Active Substance: SODIUM CHLORIDE
     Dosage: CONTINUOUS INFUSION 0.9% FLUSH,  (4DF/DAY)
  11. IRON [Concomitant]
     Active Substance: IRON
     Route: 048

REACTIONS (2)
  - Extravasation [Recovered/Resolved]
  - Epistaxis [Recovered/Resolved]
